FAERS Safety Report 5270080-2 (Version None)
Quarter: 2007Q1

REPORT INFORMATION
  Report Type: 
  Country: None (occurrence: None)
  Receive Date: 20070314
  Receipt Date: 20070228
  Transmission Date: 20070707
  Serious: Yes (Hospitalization)
  Sender: FDA-Public Use
  Company Number: 200611IM000657

PATIENT
  Age: 78 Year
  Sex: Male
  Weight: 81.6475 kg

DRUGS (17)
  1. INTERFERON GAMMA-1B [Suspect]
     Indication: IDIOPATHIC PULMONARY FIBROSIS
     Dosage: 200 UG, TIW, SUBCUTANEOUS
     Route: 058
     Dates: start: 20041229
  2. PROSCAR [Concomitant]
  3. HYDROCHLOROTHIAZIDE [Concomitant]
  4. MOBIC [Concomitant]
  5. ACTOS [Concomitant]
  6. LIPITOR [Concomitant]
  7. TYLENOL [Concomitant]
  8. ECOTRIN [Concomitant]
  9. AMARYL [Concomitant]
  10. METFORMIN HCL [Concomitant]
  11. HYCODAN [Concomitant]
  12. ADVIL [Concomitant]
  13. ALEVE [Concomitant]
  14. TYLENOL EXTRA-STRENGTH [Concomitant]
  15. VITAMIN E [Concomitant]
  16. CENTRUM SILVER [Concomitant]
  17. AGEL FLX [Concomitant]

REACTIONS (7)
  - ACTIVATED PARTIAL THROMBOPLASTIN TIME PROLONGED [None]
  - ARTERIOSCLEROSIS CORONARY ARTERY [None]
  - BLOOD GLUCOSE INCREASED [None]
  - CORONARY ARTERY STENOSIS [None]
  - HAEMORRHAGE [None]
  - MITRAL VALVE INCOMPETENCE [None]
  - RED BLOOD CELL COUNT DECREASED [None]
